FAERS Safety Report 25024284 (Version 1)
Quarter: 2025Q1

REPORT INFORMATION
  Report Type: Spontaneous
  Country: US (occurrence: US)
  Receive Date: 20250228
  Receipt Date: 20250228
  Transmission Date: 20250409
  Serious: No
  Sender: MYLAN
  Company Number: US-MYLANLABS-2025M1013281

PATIENT
  Sex: Female

DRUGS (1)
  1. ACITRETIN [Suspect]
     Active Substance: ACITRETIN
     Indication: Skin papilloma

REACTIONS (1)
  - Off label use [Unknown]
